FAERS Safety Report 19078020 (Version 1)
Quarter: 2021Q1

REPORT INFORMATION
  Report Type: Report from Study
  Country: US (occurrence: US)
  Receive Date: 20210331
  Receipt Date: 20210331
  Transmission Date: 20210420
  Serious: Yes (Other)
  Sender: FDA-Public Use
  Company Number: US-MYLANLABS-2021M1018971

PATIENT
  Age: 62 Year
  Sex: Female

DRUGS (4)
  1. VORINOSTAT [Concomitant]
     Active Substance: VORINOSTAT
     Indication: INVASIVE DUCTAL BREAST CARCINOMA
     Dosage: UNK, CYCLE TWELVE CYCLES
     Route: 065
     Dates: start: 201207, end: 201210
  2. TRASTUZUMAB. [Concomitant]
     Active Substance: TRASTUZUMAB
     Indication: INVASIVE DUCTAL BREAST CARCINOMA
     Dosage: UNK, CYCLE TWELVE CYCLES
     Route: 065
     Dates: start: 201207, end: 201210
  3. PACLITAXEL. [Suspect]
     Active Substance: PACLITAXEL
     Indication: INVASIVE DUCTAL BREAST CARCINOMA
     Dosage: UNK UNK, CYCLE TWELVE CYCLES
     Route: 065
     Dates: start: 201207, end: 201210
  4. TRASTUZUMAB. [Concomitant]
     Active Substance: TRASTUZUMAB
     Dosage: MAINTENANCE THERAPY
     Route: 065

REACTIONS (2)
  - Dysphonia [Recovered/Resolved]
  - Vocal cord dysfunction [Recovered/Resolved]

NARRATIVE: CASE EVENT DATE: 201304
